FAERS Safety Report 11502565 (Version 1)
Quarter: 2015Q3

REPORT INFORMATION
  Report Type: Spontaneous
  Country: US (occurrence: US)
  Receive Date: 20150914
  Receipt Date: 20150914
  Transmission Date: 20151125
  Serious: Yes (Death, Other)
  Sender: FDA-Public Use
  Company Number: US-ASTELLAS-2015US022344

PATIENT
  Age: 75 Year
  Sex: Male

DRUGS (1)
  1. XTANDI [Suspect]
     Active Substance: ENZALUTAMIDE
     Indication: PROSTATE CANCER
     Dosage: 2 CAPASULES QD
     Route: 048
     Dates: start: 20140925, end: 20150423

REACTIONS (2)
  - Malignant neoplasm progression [Fatal]
  - Underdose [Unknown]

NARRATIVE: CASE EVENT DATE: 20140925
